FAERS Safety Report 5460825-0 (Version None)
Quarter: 2007Q3

REPORT INFORMATION
  Report Type: 
  Country: None (occurrence: None)
  Receive Date: 20070919
  Receipt Date: 20070910
  Transmission Date: 20080115
  Serious: No
  Sender: FDA-Public Use
  Company Number: US-BOEHRINGER INGELHEIM PHARMACEUTICALS, INC.-2007-BP-20775BP

PATIENT
  Sex: Male

DRUGS (4)
  1. ZANTAC 75 [Suspect]
     Indication: DYSPEPSIA
     Route: 048
     Dates: start: 20070908, end: 20070908
  2. ZANTAC 75 [Suspect]
  3. CLARITIN [Concomitant]
     Indication: HYPERSENSITIVITY
  4. LOPRESSOR [Concomitant]
     Indication: HYPERTENSION

REACTIONS (1)
  - ALTERED STATE OF CONSCIOUSNESS [None]
